FAERS Safety Report 24187433 (Version 2)
Quarter: 2024Q4

REPORT INFORMATION
  Report Type: Spontaneous
  Country: US (occurrence: US)
  Receive Date: 20240808
  Receipt Date: 20241014
  Transmission Date: 20250115
  Serious: No
  Sender: ABBVIE
  Company Number: US-ABBVIE-5864920

PATIENT
  Age: 56 Year
  Sex: Female

DRUGS (2)
  1. BOTOX COSMETIC [Suspect]
     Active Substance: ONABOTULINUMTOXINA
     Indication: Product used for unknown indication
     Dosage: TIME INTERVAL: AS NECESSARY: DOSE: 5 UNITS?STRENGTH: 200 UNIT?FREQUENCY: ONCE
     Route: 030
     Dates: start: 20170126, end: 20170126
  2. BOTOX COSMETIC [Suspect]
     Active Substance: ONABOTULINUMTOXINA
     Indication: Product used for unknown indication
     Dosage: TIME INTERVAL: AS NECESSARY: DOSE: 5 UNITS?STRENGTH: 200 UNIT?FREQUENCY: ONCE
     Route: 030
     Dates: start: 20170126, end: 20170126

REACTIONS (3)
  - Post procedural contusion [Recovering/Resolving]
  - Multiple use of single-use product [Unknown]
  - Product administered from unauthorised provider [Unknown]

NARRATIVE: CASE EVENT DATE: 20170126
